FAERS Safety Report 6993991-6 (Version None)
Quarter: 2010Q3

REPORT INFORMATION
  Report Type: 
  Country: None (occurrence: None)
  Receive Date: 20100917
  Receipt Date: 20100405
  Transmission Date: 20110219
  Serious: No
  Sender: FDA-Public Use
  Company Number: US-ASTRAZENECA-2010SE13713

PATIENT
  Age: 50 Year
  Sex: Female
  Weight: 56.7 kg

DRUGS (5)
  1. SEROQUEL [Suspect]
     Indication: MENTAL DISORDER
     Route: 048
  2. SEROQUEL [Suspect]
     Indication: MOOD SWINGS
     Route: 048
  3. SEROQUEL [Suspect]
     Indication: PANIC ATTACK
     Route: 048
  4. CELEXA [Concomitant]
  5. ELAVIL [Concomitant]

REACTIONS (6)
  - AFFECT LABILITY [None]
  - AGGRESSION [None]
  - AMNESIA [None]
  - DRUG DOSE OMISSION [None]
  - MOOD ALTERED [None]
  - PANIC ATTACK [None]
